FAERS Safety Report 20407738 (Version 4)
Quarter: 2022Q2

REPORT INFORMATION
  Report Type: Report from Study
  Country: CO (occurrence: CO)
  Receive Date: 20220131
  Receipt Date: 20220423
  Transmission Date: 20220721
  Serious: Yes (Hospitalization, Other)
  Sender: FDA-Public Use
  Company Number: CO-ABBVIE-21K-036-3938163-00

PATIENT
  Sex: Female
  Weight: 65 kg

DRUGS (4)
  1. HUMIRA [Suspect]
     Active Substance: ADALIMUMAB
     Indication: Ankylosing spondylitis
     Route: 058
     Dates: start: 20140122
  2. HUMIRA [Suspect]
     Active Substance: ADALIMUMAB
     Indication: Ankylosing spondylitis
     Route: 058
     Dates: end: 20211006
  3. HUMIRA [Suspect]
     Active Substance: ADALIMUMAB
     Route: 058
     Dates: end: 20220104
  4. HUMIRA [Suspect]
     Active Substance: ADALIMUMAB
     Route: 058
     Dates: start: 2022

REACTIONS (27)
  - Cyanosis [Recovering/Resolving]
  - Cellulitis [Not Recovered/Not Resolved]
  - Nail infection [Recovering/Resolving]
  - Colitis ulcerative [Recovered/Resolved]
  - Osteoarthritis [Recovering/Resolving]
  - Skin disorder [Recovering/Resolving]
  - Anosmia [Recovering/Resolving]
  - Drug hypersensitivity [Recovering/Resolving]
  - Skin disorder [Recovering/Resolving]
  - Acne [Recovering/Resolving]
  - Diabetes mellitus [Recovering/Resolving]
  - Swelling [Unknown]
  - Flushing [Unknown]
  - Pruritus [Recovering/Resolving]
  - Cough [Unknown]
  - Visual impairment [Recovering/Resolving]
  - Sleep disorder [Unknown]
  - Anaemia [Recovered/Resolved]
  - Cough [Recovering/Resolving]
  - Ageusia [Recovering/Resolving]
  - Suspected COVID-19 [Recovering/Resolving]
  - Purulent discharge [Recovering/Resolving]
  - Discomfort [Recovering/Resolving]
  - Arthralgia [Recovering/Resolving]
  - Arthropathy [Not Recovered/Not Resolved]
  - Gastroenteritis [Recovered/Resolved]
  - Drug ineffective [Unknown]

NARRATIVE: CASE EVENT DATE: 20140101
